FAERS Safety Report 4578080-2 (Version None)
Quarter: 2005Q1

REPORT INFORMATION
  Report Type: 
  Country: None (occurrence: None)
  Receive Date: 20050202
  Receipt Date: 20050202
  Transmission Date: 20050727
  Serious: Yes (Hospitalization)
  Sender: FDA-Public Use
  Company Number: None

PATIENT
  Age: 53 Year
  Sex: Male

DRUGS (2)
  1. ERBITUX (CETUXIMAB) [Suspect]
     Indication: OESOPHAGEAL ADENOCARCINOMA
     Dosage: 250 MG/M2 IV BOLUS WKLY
     Route: 040
     Dates: start: 20040823
  2. COMPAZINE [Concomitant]

REACTIONS (8)
  - ABDOMINAL PAIN UPPER [None]
  - CONSTIPATION [None]
  - FEEDING TUBE COMPLICATION [None]
  - FLATULENCE [None]
  - FLUID INTAKE REDUCED [None]
  - NAUSEA [None]
  - PLEURAL EFFUSION [None]
  - VOMITING [None]
